FAERS Safety Report 10816013 (Version 2)
Quarter: 2015Q1

REPORT INFORMATION
  Report Type: Spontaneous
  Country: US (occurrence: US)
  Receive Date: 20150218
  Receipt Date: 20150319
  Transmission Date: 20150721
  Serious: Yes (Other)
  Sender: FDA-Public Use
  Company Number: US-UCBSA-2015004221

PATIENT
  Age: 43 Year
  Sex: Male
  Weight: 86 kg

DRUGS (5)
  1. CIMZIA [Suspect]
     Active Substance: CERTOLIZUMAB PEGOL
     Indication: CROHN^S DISEASE
     Dosage: 400 MG, EV 2 WEEKS(QOW), INDUCTION DOSING
     Route: 058
     Dates: start: 20141229, end: 20150112
  2. AMBIEN [Concomitant]
     Active Substance: ZOLPIDEM TARTRATE
     Indication: SLEEP DISORDER
     Dosage: 6.25 MG, AS NEEDED (PRN)
     Route: 048
     Dates: start: 2012
  3. VSL [Concomitant]
     Indication: GASTROINTESTINAL DISORDER
     Dosage: UNKNOWN DOSE, ONCE DAILY (QD)
     Route: 048
     Dates: start: 2013
  4. VITAMIN D [Concomitant]
     Active Substance: CHOLECALCIFEROL
     Indication: SUPPLEMENTATION THERAPY
     Dosage: UNKNOWN DOSE, ONCE DAILY (QD)
     Route: 048
     Dates: start: 2012
  5. FISH OIL [Concomitant]
     Active Substance: FISH OIL
     Indication: PRODUCT USED FOR UNKNOWN INDICATION
     Dosage: UNKNOWN DOSE, ONCE DAILY (QD)
     Route: 048
     Dates: start: 2012

REACTIONS (2)
  - Rash generalised [Recovered/Resolved]
  - Rash erythematous [Recovered/Resolved]

NARRATIVE: CASE EVENT DATE: 20150113
